FAERS Safety Report 10132715 (Version 1)
Quarter: 2014Q2

REPORT INFORMATION
  Report Type: Spontaneous
  Country: ES (occurrence: ES)
  Receive Date: 20140428
  Receipt Date: 20140428
  Transmission Date: 20141212
  Serious: Yes (Other)
  Sender: FDA-Public Use
  Company Number: ALCN2014ES002611

PATIENT
  Age: 46 Year
  Sex: Female

DRUGS (6)
  1. MAXIDEX [Suspect]
     Indication: POSTOPERATIVE CARE
     Dosage: 1 DF, QID
     Route: 047
     Dates: start: 20140319
  2. MAXIDEX [Suspect]
     Dosage: 1 DF, QW
  3. NEVANAC [Suspect]
     Indication: POSTOPERATIVE CARE
     Dosage: 1 DF, Q12H
     Route: 047
     Dates: start: 20140319
  4. ZONEGRAN [Concomitant]
     Dosage: UNK
     Dates: start: 20091008
  5. ESCITALOPRAM STADA [Concomitant]
     Dosage: UNK
     Dates: start: 20100513
  6. LORAZEPAM NORMON [Concomitant]
     Dosage: UNK
     Dates: start: 20100104

REACTIONS (1)
  - Ocular hypertension [Unknown]
